FAERS Safety Report 11941266 (Version 3)
Quarter: 2016Q1

REPORT INFORMATION
  Report Type: Report from Study
  Country: US (occurrence: US)
  Receive Date: 20160122
  Receipt Date: 20160309
  Transmission Date: 20160526
  Serious: Yes (Hospitalization, Other)
  Sender: FDA-Public Use
  Company Number: US-ACTELION-A-NJ2016-130230

PATIENT
  Age: 53 Year
  Sex: Female

DRUGS (4)
  1. MACITENTAN [Suspect]
     Active Substance: MACITENTAN
     Indication: PULMONARY HYPERTENSION
     Dosage: 10 MG, QD
     Route: 048
  2. RIOCIGUAT [Concomitant]
     Active Substance: RIOCIGUAT
  3. TYVASO [Suspect]
     Active Substance: TREPROSTINIL
     Indication: PRODUCT USED FOR UNKNOWN INDICATION
     Route: 065
  4. COUMADIN [Suspect]
     Active Substance: WARFARIN SODIUM
     Indication: PRODUCT USED FOR UNKNOWN INDICATION
     Route: 065

REACTIONS (12)
  - Epistaxis [Unknown]
  - Gastric mucosal lesion [Unknown]
  - Dyspnoea [Unknown]
  - Gastrointestinal arteriovenous malformation [Unknown]
  - Headache [Unknown]
  - Oedema peripheral [Unknown]
  - Unevaluable event [Unknown]
  - Nasal ulcer [Unknown]
  - Transfusion [Unknown]
  - Anaemia [Unknown]
  - Gastric ulcer haemorrhage [Unknown]
  - Cardiac failure congestive [Unknown]
